FAERS Safety Report 12694295 (Version 2)
Quarter: 2016Q4

REPORT INFORMATION
  Report Type: Spontaneous
  Country: GB (occurrence: GB)
  Receive Date: 20160829
  Receipt Date: 20161003
  Transmission Date: 20170207
  Serious: Yes (Other)
  Sender: FDA-Public Use
  Company Number: GB-AMGEN-GBRSP2016111212

PATIENT
  Age: 78 Year
  Sex: Female
  Weight: 56 kg

DRUGS (3)
  1. AZATHIOPRINE. [Concomitant]
     Active Substance: AZATHIOPRINE
     Indication: SARCOIDOSIS
     Dosage: UNK
     Dates: start: 20130924
  2. PROLIA [Suspect]
     Active Substance: DENOSUMAB
     Indication: OSTEOPOROSIS
     Dosage: 60 MG/ML, UNK
     Route: 058
     Dates: start: 20160714
  3. AMIODARONE [Concomitant]
     Active Substance: AMIODARONE
     Indication: SARCOIDOSIS
     Dosage: UNK
     Dates: start: 20130924

REACTIONS (2)
  - Cardiac failure [Recovered/Resolved]
  - Hydrothorax [Recovered/Resolved]

NARRATIVE: CASE EVENT DATE: 2016
